FAERS Safety Report 8150855-2 (Version None)
Quarter: 2012Q1

REPORT INFORMATION
  Report Type: 
  Country: None (occurrence: None)
  Receive Date: 20120220
  Receipt Date: 20120207
  Transmission Date: 20120608
  Serious: Yes (Other)
  Sender: FDA-Public Use
  Company Number: US-ELI_LILLY_AND_COMPANY-US200910006792

PATIENT
  Sex: Female

DRUGS (8)
  1. ASPIRIN [Concomitant]
  2. TEMAZEPAM [Concomitant]
  3. EFFEXOR [Concomitant]
  4. CYCRIN [Concomitant]
  5. LITHIUM CARBONATE [Concomitant]
  6. ZYPREXA [Suspect]
     Indication: BIPOLAR DISORDER
     Dosage: 10 MG, QD
     Dates: start: 19980629, end: 20070517
  7. ALBUTEROL [Concomitant]
  8. TEGRETOL [Concomitant]

REACTIONS (10)
  - HYPERLIPIDAEMIA [None]
  - PARAESTHESIA [None]
  - RENAL FAILURE [None]
  - FUNGAL INFECTION [None]
  - VAGINAL HAEMORRHAGE [None]
  - CHEST PAIN [None]
  - OEDEMA PERIPHERAL [None]
  - UTERINE POLYP [None]
  - HYPERTENSION [None]
  - DIABETES MELLITUS [None]
